FAERS Safety Report 23408569 (Version 2)
Quarter: 2024Q3

REPORT INFORMATION
  Report Type: Spontaneous
  Country: US (occurrence: US)
  Receive Date: 20240117
  Receipt Date: 20240826
  Transmission Date: 20241016
  Serious: No
  Sender: SANOFI AVENTIS
  Company Number: US-SA-SAC20240111001953

PATIENT
  Age: 17 Year
  Sex: Female

DRUGS (2)
  1. DUPIXENT [Suspect]
     Active Substance: DUPILUMAB
     Indication: Dermatitis
     Dosage: 300MG EVERY 2 WEEKS
     Route: 058
     Dates: start: 20230922, end: 20231007
  2. DUPIXENT [Suspect]
     Active Substance: DUPILUMAB
     Indication: Eczema

REACTIONS (6)
  - Dermatitis [Unknown]
  - Dry skin [Recovering/Resolving]
  - Skin haemorrhage [Recovering/Resolving]
  - Skin fissures [Recovering/Resolving]
  - Product use in unapproved indication [Unknown]
  - Product dose omission issue [Unknown]

NARRATIVE: CASE EVENT DATE: 20230922
